FAERS Safety Report 5419066-5 (Version None)
Quarter: 2007Q3

REPORT INFORMATION
  Report Type: 
  Country: None (occurrence: None)
  Receive Date: 20070820
  Receipt Date: 20070810
  Transmission Date: 20080115
  Serious: Yes (Other)
  Sender: FDA-Public Use
  Company Number: PHNU2007DE02817

PATIENT
  Age: 46 Year
  Sex: Male

DRUGS (7)
  1. LEPONEX [Suspect]
     Indication: PSYCHOTIC DISORDER
     Route: 048
  2. FLUVOXAMINE MALEATE [Concomitant]
     Indication: PSYCHOTIC DISORDER
     Route: 065
     Dates: start: 20060101
  3. RISPERDAL [Concomitant]
     Indication: PSYCHOTIC DISORDER
     Dosage: 25 MG, BIW
     Route: 065
     Dates: start: 20070501
  4. TRILEPTAL [Suspect]
     Indication: EPILEPSY
     Dosage: UNK, UNK
     Route: 048
     Dates: start: 20060101
  5. TRILEPTAL [Suspect]
     Dosage: 150 MG, BID
     Route: 048
     Dates: start: 20070501
  6. KEPPRA [Concomitant]
     Indication: EPILEPSY
     Dosage: 50-0-100 MG/DAY
     Route: 048
     Dates: start: 20070501
  7. CARBAMAZEPINE [Concomitant]
     Indication: EPILEPSY
     Route: 065
     Dates: end: 20060101

REACTIONS (4)
  - CONVULSION [None]
  - DRUG INTERACTION [None]
  - HYPONATRAEMIA [None]
  - PSYCHOTIC DISORDER [None]
